FAERS Safety Report 7109383-5 (Version None)
Quarter: 2010Q4

REPORT INFORMATION
  Report Type: 
  Country: None (occurrence: None)
  Receive Date: 20101118
  Receipt Date: 20101109
  Transmission Date: 20110411
  Serious: Yes (Hospitalization)
  Sender: FDA-Public Use
  Company Number: US-BIOGENIDEC-2010BI039614

PATIENT
  Age: 38 Year
  Sex: Female

DRUGS (3)
  1. AVONEX [Suspect]
     Indication: MULTIPLE SCLEROSIS
     Route: 030
     Dates: start: 20001101, end: 20030801
  2. AVONEX [Suspect]
     Route: 030
     Dates: start: 20030801, end: 20061109
  3. AVONEX [Suspect]
     Route: 030
     Dates: start: 20091222

REACTIONS (1)
  - FALL [None]
